FAERS Safety Report 4459513-9 (Version None)
Quarter: 2004Q3

REPORT INFORMATION
  Report Type: 
  Country: None (occurrence: None)
  Receive Date: 20040910
  Receipt Date: 20040521
  Transmission Date: 20050211
  Serious: No
  Sender: FDA-Public Use
  Company Number: 2004215648US

PATIENT
  Age: 52 Year
  Sex: Female

DRUGS (10)
  1. BEXTRA [Suspect]
     Indication: FIBROMYALGIA
     Dosage: 10 MG, BID, UNK
     Route: 065
     Dates: start: 20040517
  2. EFFEXOR [Concomitant]
  3. FLEXERIL [Concomitant]
  4. LEVOXYL [Concomitant]
  5. DICYCLOMINE [Concomitant]
  6. PREMARIN [Concomitant]
  7. XANAX [Concomitant]
  8. AMBIEN [Concomitant]
  9. KLONOPIN [Concomitant]
  10. CALCIUM [Concomitant]

REACTIONS (4)
  - DECREASED APPETITE [None]
  - LOGORRHOEA [None]
  - NERVOUSNESS [None]
  - WEIGHT DECREASED [None]
